FAERS Safety Report 7007731-8 (Version None)
Quarter: 2010Q3

REPORT INFORMATION
  Report Type: 
  Country: None (occurrence: None)
  Receive Date: 20100920
  Receipt Date: 20100908
  Transmission Date: 20110219
  Serious: Yes (Hospitalization)
  Sender: FDA-Public Use
  Company Number: US-003633

PATIENT
  Sex: Male
  Weight: 42.1845 kg

DRUGS (2)
  1. PROSED/DS (NOT SPECIFIED) [Suspect]
     Indication: URINARY TRACT INFECTION
     Dosage: (ONE TABLE, TWO TIMES A DAY ORAL)
     Route: 048
     Dates: start: 20100907
  2. SINGULAIR [Concomitant]

REACTIONS (3)
  - BLOOD GLUCOSE INCREASED [None]
  - CALCULUS URETERIC [None]
  - GLUCOSE URINE PRESENT [None]
